FAERS Safety Report 4847575-6 (Version None)
Quarter: 2005Q4

REPORT INFORMATION
  Report Type: 
  Country: None (occurrence: None)
  Receive Date: 20051205
  Receipt Date: 20051128
  Transmission Date: 20060501
  Serious: Yes (Hospitalization)
  Sender: FDA-Public Use
  Company Number: 2005-04608

PATIENT
  Age: 22 Year
  Sex: Male

DRUGS (1)
  1. DICLOFENAC POTASSIUM [Suspect]
     Indication: MYALGIA
     Dosage: 50 MG, BID, ORAL
     Route: 048

REACTIONS (1)
  - RHABDOMYOLYSIS [None]
